FAERS Safety Report 9601149 (Version 2)
Quarter: 2014Q1

REPORT INFORMATION
  Report Type: Spontaneous
  Country: GB (occurrence: GB)
  Receive Date: 20131004
  Receipt Date: 20140122
  Transmission Date: 20141002
  Serious: Yes (Other)
  Sender: FDA-Public Use
  Company Number: GB-JNJFOC-20130916517

PATIENT
  Age: 71 Year
  Sex: Male
  Weight: 88 kg

DRUGS (8)
  1. NICORETTE (UNSPECIFIED) [Suspect]
     Indication: SMOKING CESSATION THERAPY
     Route: 048
     Dates: start: 201306, end: 20130830
  2. AMLODIPINE [Concomitant]
     Indication: HYPERTENSION
     Route: 048
     Dates: start: 2005
  3. ASPIRIN [Concomitant]
     Indication: PRODUCT USED FOR UNKNOWN INDICATION
     Route: 048
     Dates: start: 2004
  4. ATENOLOL [Concomitant]
     Indication: HYPERTENSION
     Route: 048
     Dates: start: 1996
  5. CHLORPHENAMINE [Concomitant]
     Indication: HYPERSENSITIVITY
     Route: 048
     Dates: start: 2010
  6. DOXAZOSIN [Concomitant]
     Indication: HYPERTENSION
     Route: 048
     Dates: start: 2010
  7. LISINOPRIL [Concomitant]
     Indication: PRODUCT USED FOR UNKNOWN INDICATION
     Route: 048
     Dates: start: 2003, end: 201306
  8. LOFEPRAMINE [Concomitant]
     Indication: DEPRESSION
     Route: 048
     Dates: start: 2007

REACTIONS (4)
  - Dyspnoea [Unknown]
  - Cough [Unknown]
  - Asthma [Recovered/Resolved]
  - Wheezing [Recovered/Resolved]
